FAERS Safety Report 8298398-X (Version None)
Quarter: 2012Q2

REPORT INFORMATION
  Report Type: 
  Country: None (occurrence: None)
  Receive Date: 20120419
  Receipt Date: 20120413
  Transmission Date: 20120825
  Serious: Yes (Other)
  Sender: FDA-Public Use
  Company Number: DE-CUBIST-2012S1000362

PATIENT
  Age: 62 Year
  Sex: Female
  Weight: 50 kg

DRUGS (2)
  1. CEFTAZIDIME [Concomitant]
     Indication: STAPHYLOCOCCAL INFECTION
  2. CUBICIN [Suspect]
     Indication: STAPHYLOCOCCAL INFECTION
     Route: 042
     Dates: start: 20120206, end: 20120314

REACTIONS (3)
  - WHITE BLOOD CELL DISORDER [None]
  - HEPATIC FAILURE [None]
  - COAGULOPATHY [None]
